FAERS Safety Report 22849138 (Version 5)
Quarter: 2023Q4

REPORT INFORMATION
  Report Type: Spontaneous
  Country: DE (occurrence: DE)
  Receive Date: 20230822
  Receipt Date: 20231107
  Transmission Date: 20240109
  Serious: Yes (Hospitalization, Other)
  Sender: FDA-Public Use
  Company Number: DE-LEO Pharma-361118

PATIENT
  Age: 55 Year
  Sex: Female

DRUGS (2)
  1. ADBRY [Suspect]
     Active Substance: TRALOKINUMAB-LDRM
     Indication: Dermatitis atopic
     Route: 058
     Dates: start: 202307, end: 202308
  2. ADBRY [Suspect]
     Active Substance: TRALOKINUMAB-LDRM
     Indication: Dermatitis atopic
     Dosage: FIRST DOSAGE WITH 4 INJECTIONS
     Route: 058
     Dates: start: 202307

REACTIONS (3)
  - Hypertensive crisis [Recovering/Resolving]
  - Hypertension [Recovered/Resolved]
  - Migraine [Recovered/Resolved]
